FAERS Safety Report 16785638 (Version 2)
Quarter: 2019Q3

REPORT INFORMATION
  Report Type: Spontaneous
  Country: US (occurrence: US)
  Receive Date: 20190909
  Receipt Date: 20190913
  Transmission Date: 20191005
  Serious: No
  Sender: FDA-Public Use
  Company Number: US-PFIZER INC-2019385280

PATIENT
  Age: 86 Year
  Sex: Male
  Weight: 109.77 kg

DRUGS (2)
  1. CAVERJECT [Suspect]
     Active Substance: ALPROSTADIL
     Dosage: 32 UG, UNK
  2. CAVERJECT [Suspect]
     Active Substance: ALPROSTADIL
     Indication: ERECTILE DYSFUNCTION
     Dosage: 40 UG, AS NEEDED (2 20MCG SHOTS AS NEEDED BY INJECTION)

REACTIONS (2)
  - Drug ineffective [Unknown]
  - Off label use [Unknown]
